FAERS Safety Report 16182411 (Version 1)
Quarter: 2019Q2

REPORT INFORMATION
  Report Type: Spontaneous
  Country: BE (occurrence: BE)
  Receive Date: 20190410
  Receipt Date: 20190410
  Transmission Date: 20190711
  Serious: Yes (Other)
  Sender: FDA-Public Use
  Company Number: PHHY2019BE082311

PATIENT
  Sex: Female

DRUGS (1)
  1. ENALAPRIL SANDOZ [Suspect]
     Active Substance: ENALAPRIL
     Indication: PRODUCT USED FOR UNKNOWN INDICATION
     Dosage: UNK
     Route: 065

REACTIONS (8)
  - Dysphagia [Unknown]
  - Swollen tongue [Unknown]
  - Stomatitis [Unknown]
  - Productive cough [Unknown]
  - Diarrhoea [Unknown]
  - Nausea [Unknown]
  - Oral mucosal blistering [Unknown]
  - Visual impairment [Unknown]
